FAERS Safety Report 19944918 (Version 1)
Quarter: 2021Q4

REPORT INFORMATION
  Report Type: Spontaneous
  Country: NL (occurrence: NL)
  Receive Date: 20211012
  Receipt Date: 20211012
  Transmission Date: 20220303
  Serious: Yes (Other)
  Sender: FDA-Public Use
  Company Number: None

PATIENT
  Age: 78 Year
  Sex: Female
  Weight: 62 kg

DRUGS (12)
  1. MELOXICAM [Interacting]
     Active Substance: MELOXICAM
     Indication: Pain
     Dosage: 1 DOSAGE FORM, PRN (PIECE WITH NAUSEA 1 X PER DAY 0.5 OR 1 PIECE IF NECESSARY)
     Dates: start: 20210624, end: 20210820
  2. LISINOPRIL [Interacting]
     Active Substance: LISINOPRIL
     Indication: Hypertension
     Dosage: 5 MILLIGRAM, QD (MILLIGRAM)
     Dates: start: 20190321, end: 20210820
  3. METOCLOPRAMIDE [Concomitant]
     Active Substance: METOCLOPRAMIDE
     Dosage: 10 MILLIGRAM, PRN (IF NECESSARY 3 X PER DAY 1)
  4. DEXAMETHASONE [Concomitant]
     Active Substance: DEXAMETHASONE
     Dosage: 1 DOSAGE FORM, PRN (ACCORDING TO SCHEDULE CHEMOTHERAPY 1 X PER DAY 1 PIECE)
  5. BARNIDIPINE [Concomitant]
     Active Substance: BARNIDIPINE
     Dosage: 10 MILLIGRAM, QD (PER DAY 1 PIECE)
  6. POLYETHYLENE GLYCOLS [Concomitant]
     Active Substance: POLYETHYLENE GLYCOLS
     Dosage: 1 DOSAGE FORM, PRN (ACCORDING TO SCHEDULE CHEMOTHERAPY 1 X PER DAY 1 PIECE)
  7. OMEPRAZOLE [Concomitant]
     Active Substance: OMEPRAZOLE
     Dosage: 20 MILLIGRAM, QD (PER DAY 1 PIECE)
  8. ZOPICLONE [Concomitant]
     Active Substance: ZOPICLONE
     Dosage: 3.75 MILLIGRAM, PRN ((IF NECESSARY 1 X PER DAY 1 PIECE, 1 TO 2 X PER3.75 MILLIGRAM, PRN)
  9. FLUTICASONE PROPIONATE [Concomitant]
     Active Substance: FLUTICASONE PROPIONATE
     Dosage: 50 MICROGRAM (IF NECESSARY 1 X PER DAY 1 PIECE, 1 TO 2 X PER DAY 1 DOSE IF NECESSARY)
  10. FLUTICASONE PROPIONATE [Concomitant]
     Active Substance: FLUTICASONE PROPIONATE
     Dosage: 200 MICROGRAM, QD (4 X PER DAY 1 DOSE IF NECESSARY )
  11. ALBUTEROL [Concomitant]
     Active Substance: ALBUTEROL
     Dosage: 200 MICROGRAM (4 X PER DAY 1 DOSE IF NECESSARY)
  12. ACETAMINOPHEN [Concomitant]
     Active Substance: ACETAMINOPHEN
     Dosage: 1000 MILLIGRAM (IF NECESSARY 1 X PER DAY 1 PIECE, 1 X DAY 1 PIECE)

REACTIONS (2)
  - Hyperkalaemia [Unknown]
  - Drug interaction [Unknown]

NARRATIVE: CASE EVENT DATE: 20210820
